FAERS Safety Report 8499798-5 (Version None)
Quarter: 2012Q3

REPORT INFORMATION
  Report Type: 
  Country: None (occurrence: None)
  Receive Date: 20120710
  Receipt Date: 20120703
  Transmission Date: 20120928
  Serious: Yes (Hospitalization)
  Sender: FDA-Public Use
  Company Number: FR-SANOFI-AVENTIS-2012SA047102

PATIENT
  Age: 69 Year
  Sex: Female

DRUGS (8)
  1. CLAFORAN [Suspect]
     Route: 065
     Dates: start: 20120406
  2. LOVENOX [Concomitant]
     Dosage: 0.4 (NOS)/DAY.
     Route: 065
     Dates: start: 20120409
  3. MEROPENEM [Suspect]
     Route: 065
     Dates: start: 20120409, end: 20120430
  4. ZYVOX [Suspect]
     Route: 065
     Dates: start: 20120409, end: 20120430
  5. FOSFOMYCIN [Suspect]
     Route: 065
     Dates: start: 20120409
  6. ACETAMINOPHEN [Suspect]
     Route: 065
     Dates: start: 20120409
  7. PHENYTOIN SODIUM [Suspect]
     Indication: PROPHYLAXIS
     Route: 065
     Dates: start: 20120409, end: 20120430
  8. ACUPAN [Suspect]
     Route: 065
     Dates: start: 20120409

REACTIONS (2)
  - DRUG RASH WITH EOSINOPHILIA AND SYSTEMIC SYMPTOMS [None]
  - STEVENS-JOHNSON SYNDROME [None]
